FAERS Safety Report 5823302-0 (Version None)
Quarter: 2008Q3

REPORT INFORMATION
  Report Type: 
  Country: None (occurrence: None)
  Receive Date: 20080725
  Receipt Date: 20080714
  Transmission Date: 20090109
  Serious: Yes (Other)
  Sender: FDA-Public Use
  Company Number: US-WYE-H05030708

PATIENT

DRUGS (1)
  1. PRISTIQ [Suspect]
     Dosage: UNKNOWN
     Route: 048

REACTIONS (4)
  - AGITATION [None]
  - INSOMNIA [None]
  - IRRITABILITY [None]
  - SUICIDAL IDEATION [None]
